FAERS Safety Report 13497060 (Version 4)
Quarter: 2017Q4

REPORT INFORMATION
  Report Type: Report from Study
  Country: US (occurrence: US)
  Receive Date: 20170428
  Receipt Date: 20171116
  Transmission Date: 20180320
  Serious: Yes (Hospitalization)
  Sender: FDA-Public Use
  Company Number: US-PFIZER INC-2017171018

PATIENT
  Age: 15 Year
  Sex: Female
  Weight: 75.5 kg

DRUGS (19)
  1. DOXORUBICIN HCL [Suspect]
     Active Substance: DOXORUBICIN HYDROCHLORIDE
     Dosage: 45 MG, UNK
     Route: 042
     Dates: start: 20170807, end: 20170807
  2. MERCAPTOPURINE. [Suspect]
     Active Substance: MERCAPTOPURINE
     Indication: B PRECURSOR TYPE ACUTE LEUKAEMIA
     Dosage: 100 MG, 4 DAYS PER WEEK AND 125 MG, 3 DAYS PER WEEK
     Route: 048
     Dates: start: 20170313
  3. VINCRISTINE SULFATE. [Suspect]
     Active Substance: VINCRISTINE SULFATE
     Indication: B PRECURSOR TYPE ACUTE LEUKAEMIA
     Dosage: 2 MG, UNK
     Route: 042
     Dates: start: 20170327, end: 20170327
  4. METHOTREXATE SODIUM. [Suspect]
     Active Substance: METHOTREXATE SODIUM
     Indication: B PRECURSOR TYPE ACUTE LEUKAEMIA
     Dosage: 15 MG, UNK
     Route: 037
     Dates: start: 20170313, end: 20170313
  5. PEGASPARGASE [Suspect]
     Active Substance: PEGASPARGASE
     Indication: B PRECURSOR TYPE ACUTE LEUKAEMIA
     Dosage: 4550 IU, UNK
     Route: 042
     Dates: start: 20170327, end: 20170327
  6. PEGASPARGASE [Suspect]
     Active Substance: PEGASPARGASE
     Dosage: 4550 IU, UNK
     Route: 042
     Dates: start: 20170424, end: 20170424
  7. VINCRISTINE SULFATE. [Suspect]
     Active Substance: VINCRISTINE SULFATE
     Dosage: 2 MG, UNK
     Route: 042
     Dates: start: 20170424, end: 20170424
  8. CYTARABINE. [Suspect]
     Active Substance: CYTARABINE
     Indication: B PRECURSOR TYPE ACUTE LEUKAEMIA
     Dosage: 136 MG, UNK
     Route: 042
     Dates: start: 20170313
  9. MERCAPTOPURINE. [Suspect]
     Active Substance: MERCAPTOPURINE
     Dosage: 100 MG, 4 DAYS PER WEEK AND 125 MG, 3 DAYS PER WEEK
     Route: 048
     Dates: start: 20170410
  10. METHOTREXATE SODIUM. [Suspect]
     Active Substance: METHOTREXATE SODIUM
     Dosage: 15 MG, UNK
     Route: 037
     Dates: start: 20170731, end: 20170731
  11. CYCLOPHOSPHAMIDE. [Suspect]
     Active Substance: CYCLOPHOSPHAMIDE
     Indication: B PRECURSOR TYPE ACUTE LEUKAEMIA
     Dosage: 1820 MG, UNK
     Route: 042
     Dates: start: 20170313, end: 20170313
  12. INCB018424 [Suspect]
     Active Substance: RUXOLITINIB
     Indication: B PRECURSOR TYPE ACUTE LEUKAEMIA
     Dosage: 70 MG, BID (TABLET)
     Route: 048
     Dates: start: 20170313
  13. DEXAMETHASONE. [Suspect]
     Active Substance: DEXAMETHASONE
     Indication: B PRECURSOR TYPE ACUTE LEUKAEMIA
     Dosage: 9 MG, BID
     Route: 048
     Dates: start: 20170731
  14. CYTARABINE. [Suspect]
     Active Substance: CYTARABINE
     Dosage: 136 MG, DAY 36-39
     Route: 042
     Dates: start: 20170417, end: 20170420
  15. METHOTREXATE SODIUM. [Suspect]
     Active Substance: METHOTREXATE SODIUM
     Dosage: 15 MG, UNK
     Route: 037
     Dates: start: 20170403, end: 20170403
  16. PEGASPARGASE [Suspect]
     Active Substance: PEGASPARGASE
     Dosage: 4520 IU, UNK
     Route: 042
     Dates: start: 20170803, end: 20170803
  17. VINCRISTINE SULFATE. [Suspect]
     Active Substance: VINCRISTINE SULFATE
     Dosage: 2 MG, UNK
     Route: 042
     Dates: start: 20170807
  18. DOXORUBICIN HCL [Suspect]
     Active Substance: DOXORUBICIN HYDROCHLORIDE
     Indication: B PRECURSOR TYPE ACUTE LEUKAEMIA
     Dosage: 45 MG, UNK
     Route: 042
     Dates: start: 20170731, end: 20170731
  19. CYCLOPHOSPHAMIDE. [Suspect]
     Active Substance: CYCLOPHOSPHAMIDE
     Dosage: 1820 MG, UNK
     Route: 042
     Dates: start: 20170410, end: 20170410

REACTIONS (3)
  - Febrile neutropenia [Recovered/Resolved]
  - Febrile neutropenia [Recovered/Resolved]
  - Febrile neutropenia [Recovered/Resolved]

NARRATIVE: CASE EVENT DATE: 20170328
